FAERS Safety Report 22061817 (Version 1)
Quarter: 2023Q1

REPORT INFORMATION
  Report Type: Report from Study
  Country: JP (occurrence: JP)
  Receive Date: 20230304
  Receipt Date: 20230304
  Transmission Date: 20230417
  Serious: Yes (Hospitalization)
  Sender: FDA-Public Use
  Company Number: JP-ABBVIE-19S-087-2639580-00

PATIENT
  Age: 50 Year
  Sex: Female
  Weight: 54 kg

DRUGS (9)
  1. CARBIDOPA\LEVODOPA [Suspect]
     Active Substance: CARBIDOPA\LEVODOPA
     Indication: Parkinson^s disease
     Dosage: MD: 10 ML CD: 2.8 ML/HR ? 16 HRS ED: 1.0 ML/UNIT ? 5?FIRST ADMIN DATE:2017?LAST ADMIN DATE:2018
     Route: 050
  2. CARBIDOPA\LEVODOPA [Suspect]
     Active Substance: CARBIDOPA\LEVODOPA
     Route: 050
     Dates: start: 20181205, end: 20190419
  3. CARBIDOPA\LEVODOPA [Suspect]
     Active Substance: CARBIDOPA\LEVODOPA
     Dosage: MD: 10 ML?CD: 3.0 ML/HR ? 16 HRS?ED: 1.0 ML/UNIT ? 3
     Route: 050
     Dates: start: 20190419, end: 20200904
  4. CARBIDOPA\LEVODOPA [Suspect]
     Active Substance: CARBIDOPA\LEVODOPA
     Dosage: MD: 8 ML?CD: 2.9 ML/HR ? 16 HRS?ED: 1.0 ML/UNIT ? 3
     Route: 050
     Dates: start: 20200904
  5. CARBIDOPA HYDRATE - LEVODOPA MIXT [Concomitant]
     Indication: Parkinson^s disease
     Route: 048
     Dates: start: 20181124
  6. ROTIGOTINE [Concomitant]
     Active Substance: ROTIGOTINE
     Indication: Parkinson^s disease
     Route: 062
     Dates: start: 20181124
  7. CLONAZEPAM [Concomitant]
     Active Substance: CLONAZEPAM
     Indication: Rapid eye movement sleep behaviour disorder
     Route: 048
  8. ESZOPICLONE [Concomitant]
     Active Substance: ESZOPICLONE
     Indication: Insomnia
     Route: 048
  9. HERBALS [Concomitant]
     Active Substance: HERBALS
     Indication: Parkinson^s disease
     Dosage: EXTRACT
     Route: 048

REACTIONS (29)
  - Medical device site ulcer [Recovered/Resolved]
  - Dyspnoea [Unknown]
  - Stoma site infection [Recovered/Resolved]
  - Abdominal pain [Not Recovered/Not Resolved]
  - Nausea [Unknown]
  - Device issue [Recovered/Resolved]
  - Abdominal pain upper [Unknown]
  - Off label use [Unknown]
  - Intussusception [Recovered/Resolved]
  - Bezoar [Recovered/Resolved]
  - Foreign body in gastrointestinal tract [Unknown]
  - Incorrect dose administered [Unknown]
  - Incorrect dose administered [Unknown]
  - Arthralgia [Recovering/Resolving]
  - Spinal osteoarthritis [Recovering/Resolving]
  - Malaise [Unknown]
  - Malaise [Recovered/Resolved]
  - Musculoskeletal stiffness [Unknown]
  - Pain in extremity [Unknown]
  - On and off phenomenon [Unknown]
  - Stoma site pain [Unknown]
  - Stoma site inflammation [Recovering/Resolving]
  - Therapeutic product effect incomplete [Recovered/Resolved]
  - Device issue [Unknown]
  - Device physical property issue [Unknown]
  - Device dislocation [Recovered/Resolved]
  - Device issue [Unknown]
  - Malaise [Unknown]
  - Therapeutic product effect incomplete [Unknown]

NARRATIVE: CASE EVENT DATE: 20181211
